FAERS Safety Report 12975746 (Version 2)
Quarter: 2017Q1

REPORT INFORMATION
  Report Type: Spontaneous
  Country: US (occurrence: US)
  Receive Date: 20161125
  Receipt Date: 20170329
  Transmission Date: 20170428
  Serious: No
  Sender: FDA-Public Use
  Company Number: PHEH2016US030915

PATIENT
  Age: 49 Year
  Sex: Female

DRUGS (1)
  1. PROMACTA [Suspect]
     Active Substance: ELTROMBOPAG OLAMINE
     Indication: IMMUNE THROMBOCYTOPENIC PURPURA
     Dosage: 50 MG, QD
     Route: 048
     Dates: start: 20161110

REACTIONS (4)
  - Fatigue [Unknown]
  - Fluid retention [Unknown]
  - Peripheral swelling [Unknown]
  - Myalgia [Unknown]

NARRATIVE: CASE EVENT DATE: 20161121
